FAERS Safety Report 6760843-6 (Version None)
Quarter: 2010Q2

REPORT INFORMATION
  Report Type: 
  Country: None (occurrence: None)
  Receive Date: 20100608
  Receipt Date: 20100525
  Transmission Date: 20101027
  Serious: Yes (Hospitalization, Other)
  Sender: FDA-Public Use
  Company Number: PHHY2010DE34691

PATIENT
  Sex: Male
  Weight: 80 kg

DRUGS (7)
  1. ALISKIREN ALI+ [Suspect]
     Indication: ESSENTIAL HYPERTENSION
     Dosage: 150 MG PER DAY
     Route: 048
     Dates: start: 20090115
  2. BISOPROLOL [Suspect]
     Indication: ESSENTIAL HYPERTENSION
     Dosage: 2.5 MG PER DAY
     Route: 048
     Dates: start: 20050603, end: 20100125
  3. CALCIUM CHANNEL BLOCKERS [Concomitant]
     Dosage: UNK
     Dates: end: 20090505
  4. METFORMIN HCL [Concomitant]
     Indication: DIABETES MELLITUS
     Dosage: 1700 MG PER DAY
     Route: 048
     Dates: start: 20030219
  5. TORSEMIDE [Concomitant]
     Indication: ESSENTIAL HYPERTENSION
     Dosage: 10 MG/D
     Route: 048
     Dates: start: 20080114
  6. ASPIRIN [Concomitant]
     Dosage: 100 MG/D
     Route: 048
     Dates: start: 20050101, end: 20100125
  7. ATACAND [Concomitant]
     Indication: ESSENTIAL HYPERTENSION
     Dosage: 16 MG/D
     Route: 048
     Dates: start: 20080114

REACTIONS (8)
  - ANGINA PECTORIS [None]
  - ATRIAL FIBRILLATION [None]
  - ATRIAL FLUTTER [None]
  - CHRONIC OBSTRUCTIVE PULMONARY DISEASE [None]
  - CONDUCTION DISORDER [None]
  - GLYCOSYLATED HAEMOGLOBIN INCREASED [None]
  - SYNCOPE [None]
  - VASCULAR DEMENTIA [None]
